FAERS Safety Report 7350441-8 (Version None)
Quarter: 2011Q1

REPORT INFORMATION
  Report Type: 
  Country: None (occurrence: None)
  Receive Date: 20110314
  Receipt Date: 20110310
  Transmission Date: 20110831
  Serious: Yes (Other)
  Sender: FDA-Public Use
  Company Number: US-PFIZER INC-2011053965

PATIENT
  Sex: Male
  Weight: 88.435 kg

DRUGS (10)
  1. TYLENOL [Concomitant]
     Indication: PAIN
     Dosage: 1300 MG, 1X/DAY
     Route: 048
  2. PAXIL [Concomitant]
     Indication: DEPRESSION
     Dosage: 20 MG, 1X/DAY
     Route: 048
  3. PROSCAR [Concomitant]
     Indication: PROSTATIC DISORDER
     Dosage: 5 MG, 1X/DAY
     Route: 048
  4. ACETYLSALICYLIC ACID [Suspect]
     Dosage: UNK
  5. HYTRIN [Concomitant]
     Indication: HYPERTENSION
     Dosage: 5 MG, 1X/DAY
  6. ZOCOR [Concomitant]
     Indication: BLOOD CHOLESTEROL INCREASED
     Dosage: 10 MG, 1X/DAY
     Route: 048
  7. FISH OIL [Concomitant]
     Dosage: UNK
  8. VITAMIN E [Concomitant]
     Dosage: UNK
  9. CELEBREX [Suspect]
     Indication: ARTHRALGIA
     Dosage: 200 MG, 1X/DAY
     Route: 048
     Dates: start: 20101101
  10. ZIAC [Concomitant]
     Indication: HYPERTENSION
     Dosage: 2.5

REACTIONS (2)
  - HAEMORRHAGE [None]
  - DRUG INEFFECTIVE [None]
